FAERS Safety Report 5736399-3 (Version None)
Quarter: 2008Q2

REPORT INFORMATION
  Report Type: 
  Country: None (occurrence: None)
  Receive Date: 20080513
  Receipt Date: 20080507
  Transmission Date: 20081010
  Serious: Yes (Hospitalization)
  Sender: FDA-Public Use
  Company Number: A0717363A

PATIENT
  Age: 63 Year
  Sex: Female

DRUGS (11)
  1. AVANDIA [Suspect]
     Dosage: 4MG PER DAY
     Route: 048
     Dates: start: 20050301, end: 20080224
  2. GLUCOTROL [Concomitant]
  3. BUSPIRONE HCL [Concomitant]
  4. VYTORIN [Concomitant]
  5. TOPROL-XL [Concomitant]
  6. DIOVAN HCT [Concomitant]
  7. GEMFIBROZIL [Concomitant]
  8. PAROXETINE HCL [Concomitant]
  9. CLONIDINE [Concomitant]
  10. FUROSEMIDE [Concomitant]
  11. NORVASC [Concomitant]

REACTIONS (7)
  - FALL [None]
  - FLUID RETENTION [None]
  - FRACTURE [None]
  - HEART RATE INCREASED [None]
  - HEPATIC ENZYME INCREASED [None]
  - OEDEMA PERIPHERAL [None]
  - WEIGHT INCREASED [None]
